FAERS Safety Report 5033293-0 (Version None)
Quarter: 2006Q2

REPORT INFORMATION
  Report Type: 
  Country: None (occurrence: None)
  Receive Date: 20060515
  Receipt Date: 20060412
  Transmission Date: 20061013
  Serious: No
  Sender: FDA-Public Use
  Company Number: S06-USA-01470-01

PATIENT
  Age: 47 Year
  Sex: Female

DRUGS (5)
  1. NAMENDA [Suspect]
     Indication: DEPRESSED LEVEL OF CONSCIOUSNESS
     Dosage: 15 MG QD PO
     Route: 048
     Dates: start: 20060408
  2. NAMENDA [Suspect]
     Indication: DEPRESSED LEVEL OF CONSCIOUSNESS
     Dosage: 5 MG QD PO
     Route: 048
     Dates: start: 20060325, end: 20060331
  3. NAMENDA [Suspect]
     Indication: DEPRESSED LEVEL OF CONSCIOUSNESS
     Dosage: 5 MG BID PO
     Route: 048
     Dates: start: 20060401, end: 20060401
  4. PAIN MEDICATION (NOS) [Concomitant]
  5. MUSCLE RELAXANTS (NOS) [Concomitant]

REACTIONS (1)
  - SEDATION [None]
